FAERS Safety Report 19435847 (Version 1)
Quarter: 2021Q2

REPORT INFORMATION
  Report Type: Report from Study
  Country: US (occurrence: US)
  Receive Date: 20210618
  Receipt Date: 20210618
  Transmission Date: 20210717
  Serious: Yes (Other)
  Sender: FDA-Public Use
  Company Number: US-CLOVIS ONCOLOGY-CLO-2021-000966

PATIENT
  Sex: Female

DRUGS (1)
  1. RUBRACA [Suspect]
     Active Substance: RUCAPARIB CAMSYLATE
     Indication: OVARIAN CANCER
     Dosage: 600 MILLIGRAM, BID
     Route: 048
     Dates: start: 20200814

REACTIONS (6)
  - Neuropathy peripheral [Unknown]
  - Fatigue [Recovering/Resolving]
  - Inappropriate schedule of product administration [Recovered/Resolved]
  - Abdominal pain [Unknown]
  - Carbohydrate antigen 125 increased [Unknown]
  - Abdominal tenderness [Unknown]

NARRATIVE: CASE EVENT DATE: 2021
